FAERS Safety Report 7245004-9 (Version None)
Quarter: 2011Q1

REPORT INFORMATION
  Report Type: 
  Country: None (occurrence: None)
  Receive Date: 20110126
  Receipt Date: 20110118
  Transmission Date: 20110831
  Serious: Yes (Hospitalization)
  Sender: FDA-Public Use
  Company Number: US-ASTELLAS-2010US005277

PATIENT

DRUGS (21)
  1. PROGRAF [Concomitant]
     Dosage: 6 MG, BID
     Route: 048
     Dates: start: 20101201
  2. MYCOPHENOLIC ACID [Concomitant]
     Indication: PRODUCT USED FOR UNKNOWN INDICATION
     Dosage: 900 MG, TOTAL DOSE
     Route: 048
     Dates: start: 20101220, end: 20101220
  3. CLOTRIMAZOLE [Concomitant]
     Indication: PRODUCT USED FOR UNKNOWN INDICATION
     Dosage: 10 MG, UID/QD
     Route: 048
     Dates: start: 20101220, end: 20101220
  4. HYDROCORTISONE [Concomitant]
     Indication: PRODUCT USED FOR UNKNOWN INDICATION
     Dosage: 100 MG, TOTAL DOSE
     Route: 040
     Dates: start: 20101220, end: 20101220
  5. VALGANCICLOVIR HCL [Concomitant]
     Indication: PRODUCT USED FOR UNKNOWN INDICATION
     Dosage: 450 MG, TOTAL DOSE
     Route: 048
     Dates: start: 20101220, end: 20101220
  6. VALCYTE [Concomitant]
     Indication: PRODUCT USED FOR UNKNOWN INDICATION
     Dosage: 450 MG, UID/QD
     Route: 065
     Dates: start: 20101201
  7. SULFAMETHOXAZOLE AND TRIMETHOPRIM [Concomitant]
     Indication: PRODUCT USED FOR UNKNOWN INDICATION
     Dosage: 1 TABLET, TOTAL DOSE
     Route: 048
     Dates: start: 20101220, end: 20101220
  8. BACTRIM [Concomitant]
     Indication: PRODUCT USED FOR UNKNOWN INDICATION
     Dosage: 1 TABLET, UID/QD
     Route: 048
     Dates: start: 20101201
  9. SOLU-MEDROL [Concomitant]
     Dosage: 250 MG, TOTAL DOSE
     Route: 040
     Dates: start: 20101221, end: 20101221
  10. PREVACID [Concomitant]
     Indication: PRODUCT USED FOR UNKNOWN INDICATION
     Dosage: 15 MG, UID/QD
     Route: 065
     Dates: start: 20101201
  11. PROGRAF [Concomitant]
     Indication: RENAL TRANSPLANT
     Dosage: 2 MG, TOTAL DOSE
     Route: 048
     Dates: start: 20101220
  12. AMEVIVE [Suspect]
     Dosage: 15 MG, UNKNOWN/D
     Route: 058
     Dates: start: 20101227
  13. CLOTRIMAZOLE [Concomitant]
     Dosage: 10 MG, BID
     Route: 048
     Dates: start: 20101201
  14. HYDROMORPHONE [Concomitant]
     Indication: PRODUCT USED FOR UNKNOWN INDICATION
     Dosage: 1 MG, TOTAL DOSE
     Route: 048
     Dates: start: 20101220, end: 20101220
  15. SOLU-MEDROL [Concomitant]
     Indication: PRODUCT USED FOR UNKNOWN INDICATION
     Dosage: 125 MG, TOTAL DOSE
     Route: 040
     Dates: start: 20101220, end: 20101220
  16. AMEVIVE [Suspect]
     Indication: RENAL TRANSPLANT
     Dosage: 7.5 MG, UNKNOWN/D
     Route: 042
     Dates: start: 20101220, end: 20101222
  17. BENADRYL [Concomitant]
     Indication: PRODUCT USED FOR UNKNOWN INDICATION
     Dosage: 25 MG, UNKNOWN/D
     Route: 040
     Dates: start: 20101220
  18. TYLENOL-500 [Concomitant]
     Indication: PRODUCT USED FOR UNKNOWN INDICATION
     Dosage: 500 MG, Q6 HOURS
     Route: 048
  19. NORCO [Suspect]
     Indication: PRODUCT USED FOR UNKNOWN INDICATION
     Dosage: UNK
     Route: 065
  20. LANSOPRAZOLE [Concomitant]
     Indication: PRODUCT USED FOR UNKNOWN INDICATION
     Dosage: 15 MG, TOTAL DOSE
     Route: 048
     Dates: start: 20101220, end: 20101220
  21. MYFORTIC [Concomitant]
     Indication: PRODUCT USED FOR UNKNOWN INDICATION
     Dosage: 720 MG, BID
     Route: 065
     Dates: start: 20101201

REACTIONS (3)
  - LARYNGOTRACHEAL OEDEMA [None]
  - FACE OEDEMA [None]
  - DEEP VEIN THROMBOSIS [None]
